FAERS Safety Report 8984146 (Version 1)
Quarter: 2012Q4

REPORT INFORMATION
  Report Type: Spontaneous
  Country: US (occurrence: None)
  Receive Date: 20121213
  Receipt Date: 20121213
  Transmission Date: 20130627
  Serious: Yes (Death, Other)
  Sender: FDA-Public Use
  Company Number: 2012P1066572

PATIENT
  Age: 63 Year
  Sex: Female

DRUGS (4)
  1. INFUMORPH [Suspect]
     Indication: LUNG CANCER
  2. INFUMORPH [Suspect]
     Indication: CANCER PAIN
  3. INFUMORPH [Suspect]
     Indication: LUNG CANCER
  4. INFUMORPH [Suspect]
     Indication: CANCER PAIN

REACTIONS (2)
  - Lung neoplasm malignant [None]
  - Malignant neoplasm progression [None]
